FAERS Safety Report 8533425-3 (Version None)
Quarter: 2012Q3

REPORT INFORMATION
  Report Type: 
  Country: None (occurrence: None)
  Receive Date: 20120724
  Receipt Date: 20120724
  Transmission Date: 20120928
  Serious: Yes (Death, Hospitalization)
  Sender: FDA-Public Use
  Company Number: PHHO2010CN12872

PATIENT
  Sex: Male
  Weight: 73 kg

DRUGS (5)
  1. ENALAPRIL MALEATE [Suspect]
     Indication: CARDIAC FAILURE
     Dosage: CODE NOT BROKEN
     Route: 048
     Dates: start: 20100520
  2. ASPIRIN [Concomitant]
     Indication: CORONARY ARTERY DISEASE
     Dosage: 100 MG, QD
     Route: 048
     Dates: start: 20070801
  3. ISOSORBIDE MONONITRATE [Concomitant]
  4. BLINDED NO TREATMENT RECEIVED [Suspect]
     Indication: CARDIAC FAILURE
     Dosage: CODE NOT BROKEN
     Route: 048
     Dates: start: 20100520
  5. BLINDED ALISKIREN [Suspect]
     Indication: CARDIAC FAILURE
     Dosage: CODE NOT BROKEN
     Route: 048
     Dates: start: 20100520

REACTIONS (16)
  - SUDDEN CARDIAC DEATH [None]
  - INCREASED UPPER AIRWAY SECRETION [None]
  - DYSPNOEA [None]
  - CARDIOMEGALY [None]
  - CARDIAC FAILURE [None]
  - LUNG INFECTION [None]
  - PNEUMONIA [None]
  - SPUTUM RETENTION [None]
  - COUGH [None]
  - FATIGUE [None]
  - CONCOMITANT DISEASE PROGRESSION [None]
  - UPPER RESPIRATORY TRACT INFECTION [None]
  - PYREXIA [None]
  - ATRIAL FIBRILLATION [None]
  - OROPHARYNGEAL PAIN [None]
  - ASTHMA [None]
